FAERS Safety Report 13747568 (Version 2)
Quarter: 2017Q3

REPORT INFORMATION
  Report Type: Spontaneous
  Country: KR (occurrence: KR)
  Receive Date: 20170712
  Receipt Date: 20170803
  Transmission Date: 20171127
  Serious: Yes (Hospitalization)
  Sender: FDA-Public Use
  Company Number: KR-009507513-1701KOR004849

PATIENT
  Age: 66 Year
  Sex: Male

DRUGS (27)
  1. EMEND (FOSAPREPITANT DIMEGLUMINE) [Suspect]
     Active Substance: FOSAPREPITANT DIMEGLUMINE
     Dosage: 150 MG, ONCE
     Route: 042
     Dates: start: 20160713, end: 20160713
  2. DEXAMETHASONE SODIUM PHOSPHATE. [Concomitant]
     Active Substance: DEXAMETHASONE SODIUM PHOSPHATE
     Dosage: STRENGTH 5MG/ML; 8 MG, ONCE
     Route: 042
     Dates: start: 20160720, end: 20160720
  3. NAVELBINE [Concomitant]
     Active Substance: VINORELBINE TARTRATE
     Indication: LUNG NEOPLASM MALIGNANT
     Dosage: STRENGTH:10MG/ML; 32 MG, ONCE, CYCLE 3
     Route: 042
     Dates: start: 20160713, end: 20160713
  4. NAVELBINE [Concomitant]
     Active Substance: VINORELBINE TARTRATE
     Dosage: STRENGTH:10MG/ML; 32 MG, ONCE, CYCLE 3
     Route: 042
     Dates: start: 20160720, end: 20160720
  5. DEXAMETHASONE SODIUM PHOSPHATE. [Concomitant]
     Active Substance: DEXAMETHASONE SODIUM PHOSPHATE
     Dosage: STRENGTH 5MG/ML; 8 MG, ONCE
     Route: 042
     Dates: start: 20160817, end: 20160817
  6. DEXAMETHASONE. [Concomitant]
     Active Substance: DEXAMETHASONE
     Dosage: 8 MG, BID
     Route: 048
     Dates: start: 20160810, end: 20160811
  7. NAVELBINE [Concomitant]
     Active Substance: VINORELBINE TARTRATE
     Dosage: STRENGTH:10MG/ML; 32 MG, ONCE, CYCLE 4
     Route: 042
     Dates: start: 20160815, end: 20160815
  8. CISPLAN [Concomitant]
     Active Substance: CISPLATIN
     Dosage: STRENGTH:50MG/100ML; 97 MG, ONCE CYCLE 4
     Route: 042
     Dates: start: 20160808, end: 20160808
  9. CIMET [Concomitant]
     Dosage: 1 TABLET, QD
     Route: 048
     Dates: start: 20160810, end: 20160811
  10. DEXAMETHASONE SODIUM PHOSPHATE. [Concomitant]
     Active Substance: DEXAMETHASONE SODIUM PHOSPHATE
     Dosage: STRENGTH 5MG/ML; 8 MG, ONCE
     Route: 042
     Dates: start: 20160809, end: 20160809
  11. DEXAMETHASONE. [Concomitant]
     Active Substance: DEXAMETHASONE
     Indication: PROPHYLAXIS
     Dosage: 8 MG, BID
     Route: 048
     Dates: start: 20160715, end: 20160716
  12. BONALING A [Concomitant]
     Indication: PROPHYLAXIS
     Dosage: 1 DF, TID
     Route: 048
     Dates: start: 201607, end: 201607
  13. EMEND (FOSAPREPITANT DIMEGLUMINE) [Suspect]
     Active Substance: FOSAPREPITANT DIMEGLUMINE
     Dosage: 150 MG, ONCE
     Route: 042
     Dates: start: 20160808, end: 20160808
  14. DEXAMETHASONE SODIUM PHOSPHATE. [Concomitant]
     Active Substance: DEXAMETHASONE SODIUM PHOSPHATE
     Indication: PREMEDICATION
     Dosage: STRENGTH 5MG/ML; 12 MG, ONCE
     Route: 042
     Dates: start: 20160713, end: 20160713
  15. DEXAMETHASONE SODIUM PHOSPHATE. [Concomitant]
     Active Substance: DEXAMETHASONE SODIUM PHOSPHATE
     Dosage: STRENGTH 5MG/ML; 12 MG, ONCE
     Route: 042
     Dates: start: 20160808, end: 20160808
  16. LACOR [Concomitant]
     Indication: HYPERTENSION
     Dosage: 1 TABLET, QD, STRENGTH: 60/12.5 MG
     Route: 048
     Dates: start: 2015
  17. ALOXI [Concomitant]
     Active Substance: PALONOSETRON HYDROCHLORIDE
     Dosage: 5 ML, ONCE
     Route: 042
     Dates: start: 20160808, end: 20160808
  18. H-2 [Concomitant]
     Dosage: STRENGTH:200MG/ML; 1 AMP, ONCE
     Route: 042
     Dates: start: 20160817, end: 20160817
  19. EMEND (FOSAPREPITANT DIMEGLUMINE) [Suspect]
     Active Substance: FOSAPREPITANT DIMEGLUMINE
     Indication: PROPHYLAXIS OF NAUSEA AND VOMITING
     Dosage: 150 MG, ONCE
     Route: 042
     Dates: start: 20160621, end: 20160621
  20. DEXAMETHASONE SODIUM PHOSPHATE. [Concomitant]
     Active Substance: DEXAMETHASONE SODIUM PHOSPHATE
     Dosage: STRENGTH 5MG/ML; 8 MG, ONCE
     Route: 042
     Dates: start: 20160714, end: 20160714
  21. ALOXI [Concomitant]
     Active Substance: PALONOSETRON HYDROCHLORIDE
     Indication: PREMEDICATION
     Dosage: 5 ML, ONCE
     Route: 042
     Dates: start: 20160713, end: 20160713
  22. H-2 [Concomitant]
     Indication: PREMEDICATION
     Dosage: STRENGTH:200MG/ML; 1 AMP, QD
     Route: 042
     Dates: start: 20160713, end: 20160714
  23. H-2 [Concomitant]
     Dosage: STRENGTH:200MG/ML; 1 AMP, ONCE
     Route: 042
     Dates: start: 20160808, end: 20160808
  24. CIMET [Concomitant]
     Indication: PROPHYLAXIS
     Dosage: 1 TABLET, QD
     Route: 048
     Dates: start: 20160715, end: 20160716
  25. NAVELBINE [Concomitant]
     Active Substance: VINORELBINE TARTRATE
     Dosage: STRENGTH:10MG/ML; 32 MG, ONCE, CYCLE 4
     Route: 042
     Dates: start: 20160808, end: 20160808
  26. CISPLAN [Concomitant]
     Active Substance: CISPLATIN
     Indication: LUNG NEOPLASM MALIGNANT
     Dosage: STRENGTH:50MG/100ML; 97 MG, ONCE CYCLE 3
     Route: 042
     Dates: start: 20160713, end: 20160713
  27. H-2 [Concomitant]
     Dosage: STRENGTH:200MG/ML; 1 AMP, ONCE
     Route: 042
     Dates: start: 20160720, end: 20160720

REACTIONS (3)
  - Dyspnoea exertional [Recovered/Resolved]
  - Pyrexia [Recovered/Resolved]
  - Cough [Recovered/Resolved]

NARRATIVE: CASE EVENT DATE: 20160720
